FAERS Safety Report 8548401-4 (Version None)
Quarter: 2012Q3

REPORT INFORMATION
  Report Type: 
  Country: None (occurrence: None)
  Receive Date: 20120717
  Receipt Date: 20120703
  Transmission Date: 20120928
  Serious: Yes (Hospitalization)
  Sender: FDA-Public Use
  Company Number: 2012-002062

PATIENT
  Age: 61 Year
  Sex: Male

DRUGS (10)
  1. RISEDRONATE SODIUM [Suspect]
     Indication: OSTEITIS DEFORMANS
     Dosage: 17.5 MG ONCE DAILY, ORAL
     Route: 048
     Dates: start: 20120407, end: 20120518
  2. NICORANDIL (NICORANDIL) [Concomitant]
  3. FAMOTIDINE [Concomitant]
  4. LIPITOR [Concomitant]
  5. ALDACTONE [Concomitant]
  6. LASIX [Concomitant]
  7. ASPIRIN [Concomitant]
  8. CARVEDILOL [Concomitant]
  9. SELBEX (TEPRENONE) [Concomitant]
  10. ASPIRIN [Concomitant]

REACTIONS (3)
  - PNEUMONIA [None]
  - GASTROINTESTINAL DISORDER [None]
  - BLOOD ALKALINE PHOSPHATASE INCREASED [None]
